FAERS Safety Report 8077499-5 (Version None)
Quarter: 2012Q1

REPORT INFORMATION
  Report Type: 
  Country: None (occurrence: None)
  Receive Date: 20120127
  Receipt Date: 20120124
  Transmission Date: 20120608
  Serious: Yes (Hospitalization)
  Sender: FDA-Public Use
  Company Number: US-B.I. PHARMACEUTICALS,INC./RIDGEFIELD-2011-BP-14907BP

PATIENT
  Sex: Male

DRUGS (12)
  1. CARVEDILOL PHOSPHATE [Concomitant]
     Route: 048
     Dates: start: 20100510
  2. ALLEGRA [Concomitant]
     Route: 048
  3. LASIX [Concomitant]
     Route: 048
  4. PRADAXA [Suspect]
     Indication: ATRIAL FIBRILLATION
     Dosage: 300 MG
     Route: 048
     Dates: start: 20101201
  5. ZOCOR [Concomitant]
     Route: 048
  6. NEXIUM [Concomitant]
     Route: 048
     Dates: start: 20100510
  7. AMLODIPINE [Concomitant]
  8. LEVITRA [Concomitant]
     Route: 048
  9. LANOXIN [Concomitant]
     Route: 048
     Dates: start: 20100510
  10. VITAMIN D [Concomitant]
     Route: 048
     Dates: start: 20110511
  11. ASPIRIN [Concomitant]
     Route: 048
     Dates: start: 20100510
  12. COZAAR [Concomitant]
     Route: 048

REACTIONS (13)
  - LOSS OF CONSCIOUSNESS [None]
  - COUGH [None]
  - HYPERTENSION [None]
  - PAIN IN EXTREMITY [None]
  - MALAISE [None]
  - CEREBROVASCULAR ACCIDENT [None]
  - DYSPNOEA [None]
  - CONTUSION [None]
  - MUSCLE SPASMS [None]
  - FEELING ABNORMAL [None]
  - TRANSIENT ISCHAEMIC ATTACK [None]
  - DYSARTHRIA [None]
  - ASTHENIA [None]
